FAERS Safety Report 8214975-6 (Version None)
Quarter: 2012Q1

REPORT INFORMATION
  Report Type: 
  Country: None (occurrence: None)
  Receive Date: 20120229
  Receipt Date: 20110811
  Transmission Date: 20120608
  Serious: Yes (Hospitalization)
  Sender: FDA-Public Use
  Company Number: PHHY2011US51750

PATIENT
  Age: 38 Year
  Sex: Male

DRUGS (14)
  1. SIMVASTATIN [Concomitant]
  2. MYCOPHENOLATE MOFETIL [Concomitant]
  3. NEORAL [Suspect]
     Indication: PROPHYLAXIS AGAINST TRANSPLANT REJECTION
  4. ATORVASTATIN [Concomitant]
  5. PREDNISONE TAB [Concomitant]
  6. CIPROFLOXACIN [Concomitant]
  7. ENALAPRIL MALEATE [Concomitant]
  8. LISINOPRIL [Concomitant]
  9. CARVEDILOL [Concomitant]
  10. EMTRONIDAZOLE (METRONIDAZOLE) [Concomitant]
  11. METHYLPREDNISOLONE [Concomitant]
  12. TACROLIMUS [Concomitant]
  13. AMOXICILLIN SODIUM W/CLAVULANATE POTASSIUM (AMOXICILLIN SODIUM, CLAVUL [Concomitant]
  14. PRAVASTATIN [Concomitant]

REACTIONS (1)
  - DIVERTICULITIS [None]
